FAERS Safety Report 15770587 (Version 1)
Quarter: 2018Q4

REPORT INFORMATION
  Report Type: Spontaneous
  Country: FR (occurrence: FR)
  Receive Date: 20181228
  Receipt Date: 20181228
  Transmission Date: 20190205
  Serious: Yes (Hospitalization)
  Sender: FDA-Public Use
  Company Number: FR-MYLANLABS-2018M1096590

PATIENT
  Age: 78 Year
  Sex: Male

DRUGS (13)
  1. CEFTAZIDIME. [Suspect]
     Active Substance: CEFTAZIDIME
     Indication: CORNEAL ABSCESS
     Dosage: 1 DROP PER HOUR FOR 48 H
     Route: 047
  2. OFLOXACIN. [Concomitant]
     Active Substance: OFLOXACIN
     Indication: ULCERATIVE KERATITIS
     Dosage: 200 MILLIGRAM
     Route: 048
  3. CEFTAZIDIME. [Suspect]
     Active Substance: CEFTAZIDIME
     Dosage: 1 DROP 10 TIMES A DAY FOR 48 H
     Route: 047
  4. VANCOMYCIN [Suspect]
     Active Substance: VANCOMYCIN
     Dosage: 1 DROP 4 TIMES A DAY FOR 48 H
     Route: 047
  5. ATROPINE. [Suspect]
     Active Substance: ATROPINE
     Indication: EYE DISORDER PROPHYLAXIS
     Dosage: 4 MG/0.4 ML THREE TIMES A DAY
     Route: 061
  6. CEFTAZIDIME. [Suspect]
     Active Substance: CEFTAZIDIME
     Dosage: 1 DROP 6 TIMES A DAY FOR 48 H
     Route: 047
  7. CEFTAZIDIME. [Suspect]
     Active Substance: CEFTAZIDIME
     Dosage: 1 DROP 8 TIMES A DAY FOR 48 H
     Route: 047
  8. VANCOMYCIN [Suspect]
     Active Substance: VANCOMYCIN
     Indication: CORNEAL ABSCESS
     Dosage: 1 DROP PER HOUR FOR 48 H
     Route: 047
  9. VANCOMYCIN [Suspect]
     Active Substance: VANCOMYCIN
     Dosage: 1 DROP 10 TIMES A DAY FOR 48 H
     Route: 047
  10. VANCOMYCIN [Suspect]
     Active Substance: VANCOMYCIN
     Dosage: 1 DROP 8 TIMES A DAY FOR 48 H
     Route: 047
  11. CEFTAZIDIME. [Suspect]
     Active Substance: CEFTAZIDIME
     Dosage: 1 DROP 4 TIMES A DAY FOR 48 H
     Route: 047
  12. CIPROFLOXACIN. [Suspect]
     Active Substance: CIPROFLOXACIN
     Indication: ULCERATIVE KERATITIS
     Dosage: ONCE A DAY
     Route: 061
  13. VANCOMYCIN [Suspect]
     Active Substance: VANCOMYCIN
     Dosage: 1 DROP 6 TIMES A DAY FOR 48 H
     Route: 047

REACTIONS (4)
  - Ulcerative keratitis [Recovering/Resolving]
  - Condition aggravated [Recovering/Resolving]
  - Toxicity to various agents [Recovering/Resolving]
  - Corneal abscess [Recovering/Resolving]
